FAERS Safety Report 16325815 (Version 1)
Quarter: 2019Q2

REPORT INFORMATION
  Report Type: Spontaneous
  Country: US (occurrence: US)
  Receive Date: 20190516
  Receipt Date: 20190516
  Transmission Date: 20190711
  Serious: Yes (Other)
  Sender: FDA-Public Use
  Company Number: None

PATIENT
  Age: 62 Year
  Sex: Female
  Weight: 81 kg

DRUGS (14)
  1. VITAMIN B [Concomitant]
     Active Substance: VITAMIN B
  2. XANAX [Concomitant]
     Active Substance: ALPRAZOLAM
  3. BIOTIN [Concomitant]
     Active Substance: BIOTIN
  4. COLLAGEN [Concomitant]
     Active Substance: COLLAGEN
  5. TRAZODONE [Concomitant]
     Active Substance: TRAZODONE HYDROCHLORIDE
  6. OXYCODONE [Concomitant]
     Active Substance: OXYCODONE
  7. SEROQUEL [Concomitant]
     Active Substance: QUETIAPINE FUMARATE
  8. SINGULAIR [Concomitant]
     Active Substance: MONTELUKAST SODIUM
  9. DEXILANT [Concomitant]
     Active Substance: DEXLANSOPRAZOLE
  10. TIZINADINE [Concomitant]
  11. OXYCONTIN [Concomitant]
     Active Substance: OXYCODONE HYDROCHLORIDE
  12. TEMAZEPAN [Concomitant]
  13. MOVANTIK [Suspect]
     Active Substance: NALOXEGOL OXALATE
     Indication: PRODUCT USED FOR UNKNOWN INDICATION
     Dosage: ?          QUANTITY:1 TABLET(S);?
     Route: 048
     Dates: start: 20190507, end: 20190511
  14. WELLBUTRIN [Concomitant]
     Active Substance: BUPROPION HYDROCHLORIDE

REACTIONS (4)
  - Abdominal pain upper [None]
  - Vomiting [None]
  - Feeling cold [None]
  - Hyperhidrosis [None]

NARRATIVE: CASE EVENT DATE: 20190511
